FAERS Safety Report 22536745 (Version 1)
Quarter: 2023Q2

REPORT INFORMATION
  Report Type: Spontaneous
  Country: CN (occurrence: None)
  Receive Date: 20230608
  Receipt Date: 20230608
  Transmission Date: 20230721
  Serious: Yes (Other)
  Sender: FDA-Public Use
  Company Number: 2023A127941

PATIENT
  Age: 16338 Day
  Sex: Male
  Weight: 76 kg

DRUGS (3)
  1. TICAGRELOR [Suspect]
     Active Substance: TICAGRELOR
     Indication: Thrombosis
     Route: 048
     Dates: start: 20230524, end: 20230526
  2. ROSUVASTATIN CALCIUM [Concomitant]
     Active Substance: ROSUVASTATIN CALCIUM
     Indication: Arteriosclerosis
     Route: 048
     Dates: start: 20230524, end: 20230530
  3. ASPIRIN [Concomitant]
     Active Substance: ASPIRIN
     Indication: Thrombosis
     Route: 048

REACTIONS (9)
  - Pulmonary mass [Unknown]
  - Haemoptysis [Recovering/Resolving]
  - Pneumonitis [Unknown]
  - Ecchymosis [Recovering/Resolving]
  - Aortic arteriosclerosis [Unknown]
  - Gallbladder polyp [Unknown]
  - Renal disorder [Unknown]
  - Left atrial enlargement [Unknown]
  - Ventricular hypertrophy [Unknown]

NARRATIVE: CASE EVENT DATE: 20230525
